FAERS Safety Report 24861669 (Version 1)
Quarter: 2025Q1

REPORT INFORMATION
  Report Type: Other
  Country: GB (occurrence: GB)
  Receive Date: 20250120
  Receipt Date: 20250120
  Transmission Date: 20250408
  Serious: Yes (Hospitalization, Other)
  Sender: MACLEODS
  Company Number: None

PATIENT

DRUGS (18)
  1. IRBESARTAN [Suspect]
     Active Substance: IRBESARTAN
     Indication: Product used for unknown indication
     Dosage: EVERY MORNING
     Route: 065
  2. METFORMIN [Suspect]
     Active Substance: METFORMIN HYDROCHLORIDE
     Indication: Product used for unknown indication
     Dosage: TWICE A DAY
     Route: 065
  3. LERCANIDIPINE [Suspect]
     Active Substance: LERCANIDIPINE
     Indication: Product used for unknown indication
     Dosage: TEATIME- PATIENT REMOVES FROM B^PACK AS GP TOLD HIM TO NOT TAKE IT 7-10 DAYS AGO
     Route: 065
  4. FUROSEMIDE [Suspect]
     Active Substance: FUROSEMIDE
     Indication: Product used for unknown indication
     Route: 065
  5. GLIMEPIRIDE [Suspect]
     Active Substance: GLIMEPIRIDE
     Indication: Product used for unknown indication
     Route: 065
  6. Alendronic acid 70mg tablets (A A H Pharmaceuticals Ltd) [Concomitant]
     Indication: Product used for unknown indication
     Dosage: ONCE A WEEK ON THURSDAYS
     Route: 065
  7. LANSOPRAZOLE [Concomitant]
     Active Substance: LANSOPRAZOLE
     Indication: Product used for unknown indication
     Dosage: TWICE A DAY
     Route: 065
  8. ATORVASTATIN [Concomitant]
     Active Substance: ATORVASTATIN
     Indication: Product used for unknown indication
     Dosage: EVERY NIGHT
     Route: 065
  9. EDOXABAN [Concomitant]
     Active Substance: EDOXABAN
     Indication: Product used for unknown indication
     Dosage: EVERY MORNING
     Route: 065
  10. Ferrous fumarate (A A H Pharmaceuticals Ltd) [Concomitant]
     Indication: Product used for unknown indication
     Dosage: ONE TO BE TAKEN DAILY
     Route: 065
  11. Glycerol 4 g suppositories [Concomitant]
     Indication: Product used for unknown indication
     Route: 065
  12. SERTRALINE [Concomitant]
     Active Substance: SERTRALINE HYDROCHLORIDE
     Indication: Product used for unknown indication
     Dosage: 28 TABLET, PT STATES NEVER HEARD OF IT, NOT TAKING- CONFIRMED WITH SON
     Route: 065
  13. GABAPENTIN [Concomitant]
     Active Substance: GABAPENTIN
     Indication: Product used for unknown indication
     Dosage: THREE TIMES A DAY
     Route: 065
  14. Laxido Orange oral powder sachets sugar free [Concomitant]
     Indication: Constipation
     Dosage: TAKE ONE TWICE A DAY FOR CONSTIPATION
     Route: 048
  15. Calcichew D3 Forte chewable tablets (DE Pharmaceuticals) [Concomitant]
     Indication: Product used for unknown indication
     Dosage: TWICE A DAY
     Route: 065
  16. Oxycodone 5 mg / 5 ml oral solution sugar free [Concomitant]
     Indication: Pain
     Route: 048
  17. Gaviscon Advance (Forum Health Products Ltd) [Concomitant]
     Indication: Product used for unknown indication
     Route: 048
  18. Co-codamol 30mg/500mg caplets (A A H Pharmaceuticals Ltd) [Concomitant]
     Indication: Product used for unknown indication
     Route: 065

REACTIONS (1)
  - Acute kidney injury [Recovered/Resolved]
